FAERS Safety Report 9815667 (Version 3)
Quarter: 2014Q1

REPORT INFORMATION
  Report Type: Report from Study
  Country: US (occurrence: US)
  Receive Date: 20140114
  Receipt Date: 20140121
  Transmission Date: 20141002
  Serious: Yes (Hospitalization)
  Sender: FDA-Public Use
  Company Number: US-MERCK-1401USA002856

PATIENT
  Age: 49 Year
  Sex: Female
  Weight: 67 kg

DRUGS (6)
  1. VORINOSTAT [Suspect]
     Indication: ACUTE MYELOID LEUKAEMIA
     Dosage: 500 MG, TID, ON DAYS 1-3
     Route: 048
     Dates: start: 20130918, end: 20130920
  2. VORINOSTAT [Suspect]
     Dosage: 500 MG, TID, ON DAYS 1-3
     Route: 048
     Dates: start: 20131210, end: 20131212
  3. CYTARABINE [Suspect]
     Indication: ACUTE MYELOID LEUKAEMIA
     Dosage: 1500 MG/M2/DAY, CONTINOUS IV INFUSION ON DAYS 4-7
     Route: 042
     Dates: start: 20130921, end: 20130924
  4. CYTARABINE [Suspect]
     Dosage: 750MG/M2/DAY CONTINUOUS IV INFUSION ON DAYS 4-6
     Route: 042
     Dates: start: 20131213, end: 20131215
  5. IDARUBICIN [Suspect]
     Indication: ACUTE MYELOID LEUKAEMIA
     Dosage: 12 MG/M2 IV OVER 15 MIN ON DAYS 4-6
     Route: 042
     Dates: start: 20130921, end: 20130923
  6. IDARUBICIN [Suspect]
     Dosage: 8 MG/M2/DAY IV OVER 15 MIN ON DAYS 4-5
     Route: 042
     Dates: start: 20131213, end: 20131214

REACTIONS (1)
  - Febrile neutropenia [Recovered/Resolved with Sequelae]
